FAERS Safety Report 9285424 (Version 2)
Quarter: 2013Q2

REPORT INFORMATION
  Report Type: Spontaneous
  Country: US (occurrence: US)
  Receive Date: 20130513
  Receipt Date: 20130614
  Transmission Date: 20140414
  Serious: No
  Sender: FDA-Public Use
  Company Number: US-PFIZER INC-2013141547

PATIENT
  Age: 85 Year
  Sex: 0

DRUGS (4)
  1. TOVIAZ [Suspect]
     Dosage: 8 MG, 1X/DAY
  2. TAMSULOSIN [Concomitant]
     Dosage: UNK
  3. OXYBUTYNIN [Concomitant]
     Dosage: UNK
  4. VITAMIN D [Concomitant]
     Dosage: UNK

REACTIONS (1)
  - Urinary incontinence [Unknown]
